FAERS Safety Report 9649608 (Version 1)
Quarter: 2013Q4

REPORT INFORMATION
  Report Type: Spontaneous
  Country: TN (occurrence: None)
  Receive Date: 20131025
  Receipt Date: 20131025
  Transmission Date: 20140711
  Serious: Yes (Other)
  Sender: FDA-Public Use
  Company Number: 2013P1020252

PATIENT
  Age: 58 Year
  Sex: Female

DRUGS (2)
  1. LITHIUM [Suspect]
     Indication: BIPOLAR DISORDER
  2. LEVOMEPROMAZINE [Suspect]
     Indication: BIPOLAR DISORDER

REACTIONS (6)
  - Pyrexia [None]
  - Cough [None]
  - Gait disturbance [None]
  - Dystonia [None]
  - Cerebellar syndrome [None]
  - Extrapyramidal disorder [None]
